FAERS Safety Report 17859616 (Version 1)
Quarter: 2020Q2

REPORT INFORMATION
  Report Type: Spontaneous
  Country: US (occurrence: US)
  Receive Date: 20200604
  Receipt Date: 20200604
  Transmission Date: 20200714
  Serious: No
  Sender: FDA-Public Use
  Company Number: US-ZYLA LIFE SCIENCES-US-2019EGA001459

PATIENT
  Sex: Female

DRUGS (1)
  1. SPRIX [Suspect]
     Active Substance: KETOROLAC TROMETHAMINE
     Indication: PROCEDURAL PAIN
     Dosage: ONE SPRAY IN EACH NOSTRIL EVERY 8 HRS
     Route: 045

REACTIONS (2)
  - Wrong technique in product usage process [Recovered/Resolved]
  - Burning sensation [Unknown]
